FAERS Safety Report 12455092 (Version 2)
Quarter: 2016Q3

REPORT INFORMATION
  Report Type: Spontaneous
  Country: US (occurrence: US)
  Receive Date: 20160610
  Receipt Date: 20160712
  Transmission Date: 20161109
  Serious: Yes (Other)
  Sender: FDA-Public Use
  Company Number: US-JNJFOC-20160526918

PATIENT
  Age: 83 Year
  Sex: Female
  Weight: 54.43 kg

DRUGS (5)
  1. BENADRYL ALLERGY LIQUI-GELS [Suspect]
     Active Substance: DIPHENHYDRAMINE HYDROCHLORIDE
     Indication: NASAL PRURITUS
     Dosage: 1 GEL (UNIT UNSPECIFIED), ONCE
     Route: 048
     Dates: start: 20160523
  2. SEPTOCAINE [Suspect]
     Active Substance: ARTICAINE HYDROCHLORIDE\EPINEPHRINE BITARTRATE
     Indication: PRODUCT USED FOR UNKNOWN INDICATION
     Route: 065
  3. NORCO [Suspect]
     Active Substance: ACETAMINOPHEN\HYDROCODONE BITARTRATE
     Indication: TOOTH EXTRACTION
     Dosage: 3 PILLS (UNSPECIFIEDS UNIT), 1 DAY
     Route: 065
     Dates: start: 20160523
  4. AMOXICILLIN. [Suspect]
     Active Substance: AMOXICILLIN
     Indication: TOOTH EXTRACTION
     Route: 065
     Dates: start: 20160523
  5. ALL OTHER THERAPEUTIC PRODUCTS [Suspect]
     Active Substance: UNSPECIFIED INGREDIENT
     Indication: PRODUCT USED FOR UNKNOWN INDICATION
     Route: 065

REACTIONS (7)
  - Laryngeal oedema [Recovered/Resolved]
  - Mouth swelling [Recovered/Resolved]
  - Hypersensitivity [Recovered/Resolved]
  - Aphonia [Recovered/Resolved]
  - Expired product administered [Recovered/Resolved]
  - Dyspnoea [Recovered/Resolved]
  - Swollen tongue [Recovered/Resolved]

NARRATIVE: CASE EVENT DATE: 20160523
